FAERS Safety Report 10750582 (Version 2)
Quarter: 2015Q2

REPORT INFORMATION
  Report Type: Spontaneous
  Country: FR (occurrence: FR)
  Receive Date: 20150114
  Receipt Date: 20150624
  Transmission Date: 20150821
  Serious: Yes (Life-Threatening)
  Sender: FDA-Public Use
  Company Number: ALB-008-14-FR

PATIENT
  Age: 50 Year
  Sex: Male

DRUGS (14)
  1. INNOHEP 14 000 IU, ANTI-XA/0.7 ML [Concomitant]
     Indication: PRODUCT USED FOR UNKNOWN INDICATION
     Dosage: LONG-TERM THERAPY
     Route: 058
  2. KETAMINE [Suspect]
     Active Substance: KETAMINE
     Indication: PAIN
     Dosage: 2 MG/HOUR
     Route: 042
     Dates: start: 20141110, end: 20141118
  3. LANSOPRAZOLE. [Concomitant]
     Active Substance: LANSOPRAZOLE
     Indication: PRODUCT USED FOR UNKNOWN INDICATION
     Dosage: LONG-TERM THERAPY
     Route: 048
  4. OXYNORM [Concomitant]
     Active Substance: OXYCODONE HYDROCHLORIDE
     Indication: PRODUCT USED FOR UNKNOWN INDICATION
     Dosage: 8 MG/HOUR
     Route: 042
     Dates: start: 20141007
  5. NEFOPAM [Concomitant]
     Active Substance: NEFOPAM
     Indication: PRODUCT USED FOR UNKNOWN INDICATION
     Dosage: 20MG/2ML
     Route: 048
     Dates: start: 20141120
  6. PARACETAMOL [Concomitant]
     Active Substance: ACETAMINOPHEN
     Indication: PRODUCT USED FOR UNKNOWN INDICATION
     Dosage: LONG-TERM THERAPY
     Route: 048
  7. TRANSULOSE [Concomitant]
     Indication: PRODUCT USED FOR UNKNOWN INDICATION
     Route: 048
     Dates: start: 20141018
  8. CEFTAZIDIME. [Concomitant]
     Active Substance: CEFTAZIDIME
     Indication: ANTIBIOTIC THERAPY
     Dates: start: 20141120
  9. FUROSEMIDE. [Suspect]
     Active Substance: FUROSEMIDE
     Indication: OEDEMA
     Route: 042
     Dates: start: 20141103, end: 20141115
  10. LYRICA [Concomitant]
     Active Substance: PREGABALIN
     Indication: PRODUCT USED FOR UNKNOWN INDICATION
     Dosage: LONG-TERM THERAPY
     Route: 048
  11. CIPROFLOXACIN. [Concomitant]
     Active Substance: CIPROFLOXACIN
     Indication: ANTIBIOTIC THERAPY
     Dates: start: 20141120
  12. HUMAN ALBUMIN (SPRINGE/VIENNA) (HUMAN ALBUMIN) [Suspect]
     Active Substance: ALBUMIN (HUMAN)
     Indication: PRODUCT USED FOR UNKNOWN INDICATION
     Route: 042
     Dates: start: 20141103, end: 20141115
  13. VANCOMYCIN MYLAN [Suspect]
     Active Substance: VANCOMYCIN
     Indication: ANTIBIOTIC THERAPY
     Route: 042
     Dates: start: 20141029, end: 20141116
  14. GEMZAR [Suspect]
     Active Substance: GEMCITABINE HYDROCHLORIDE
     Indication: CHONDROSARCOMA
     Dosage: DAY ONE OF 2ND CYCLE
     Route: 042
     Dates: start: 20141027, end: 20141027

REACTIONS (8)
  - Acute kidney injury [None]
  - Urinary tract infection [None]
  - Pseudomonas test positive [None]
  - Constipation [None]
  - Peritonitis [None]
  - Pain [None]
  - Drug reaction with eosinophilia and systemic symptoms [Recovered/Resolved]
  - Urinary tract obstruction [None]

NARRATIVE: CASE EVENT DATE: 20141113
